FAERS Safety Report 9383548 (Version 1)
Quarter: 2013Q3

REPORT INFORMATION
  Report Type: Spontaneous
  Country: US (occurrence: US)
  Receive Date: 20130704
  Receipt Date: 20130704
  Transmission Date: 20140515
  Serious: No
  Sender: FDA-Public Use
  Company Number: US-PFIZER INC-2013196193

PATIENT
  Sex: 0

DRUGS (1)
  1. MEDROL [Suspect]
     Dosage: 16 MG, UNK

REACTIONS (4)
  - Asthma [Recovering/Resolving]
  - Bone pain [Unknown]
  - Bone disorder [Unknown]
  - Joint stiffness [Unknown]
